FAERS Safety Report 8131409-0 (Version None)
Quarter: 2012Q1

REPORT INFORMATION
  Report Type: 
  Country: None (occurrence: None)
  Receive Date: 20120213
  Receipt Date: 20120203
  Transmission Date: 20120608
  Serious: Yes (Hospitalization)
  Sender: FDA-Public Use
  Company Number: US-BAYER-201034701NA

PATIENT
  Age: 43 Year
  Sex: Female
  Weight: 80.272 kg

DRUGS (4)
  1. PROZAC [Concomitant]
     Dosage: 20 MG, DAILY
     Route: 048
  2. SYNTHROID [Concomitant]
     Dosage: 125 MCG, DAILY
     Route: 048
  3. YASMIN [Suspect]
     Route: 048
     Dates: start: 20080301, end: 20080913
  4. YAZ [Suspect]
     Route: 048
     Dates: start: 20080301, end: 20080913

REACTIONS (5)
  - PAIN IN EXTREMITY [None]
  - ERYTHEMA [None]
  - TENDERNESS [None]
  - SWELLING [None]
  - DEEP VEIN THROMBOSIS [None]
